FAERS Safety Report 7927917-5 (Version None)
Quarter: 2011Q4

REPORT INFORMATION
  Report Type: 
  Country: None (occurrence: None)
  Receive Date: 20111118
  Receipt Date: 20111116
  Transmission Date: 20120403
  Serious: Yes (Hospitalization)
  Sender: FDA-Public Use
  Company Number: US-SANOFI-AVENTIS-2011SA075469

PATIENT
  Age: 59 Year
  Sex: Male
  Weight: 83.9 kg

DRUGS (5)
  1. AMILORIDE HYDROCHLORIDE [Suspect]
     Route: 065
  2. FUROSEMIDE [Suspect]
     Indication: ASCITES
     Route: 065
  3. FUROSEMIDE [Suspect]
     Dosage: DOSE INCREASED
     Route: 065
  4. AMILORIDE HYDROCHLORIDE [Suspect]
     Indication: ASCITES
     Route: 065
  5. SPIRONOLACTONE [Suspect]
     Indication: ASCITES
     Route: 065

REACTIONS (10)
  - ASCITES [None]
  - ABDOMINAL DISTENSION [None]
  - ENCEPHALOPATHY [None]
  - DYSPNOEA [None]
  - BLOOD CREATININE INCREASED [None]
  - INTERNATIONAL NORMALISED RATIO INCREASED [None]
  - BLOOD BILIRUBIN INCREASED [None]
  - URINE OUTPUT DECREASED [None]
  - GYNAECOMASTIA [None]
  - HEPATORENAL SYNDROME [None]
